FAERS Safety Report 19832879 (Version 1)
Quarter: 2021Q3

REPORT INFORMATION
  Report Type: Spontaneous
  Country: US (occurrence: US)
  Receive Date: 20210915
  Receipt Date: 20210915
  Transmission Date: 20211014
  Serious: Yes (Other)
  Sender: FDA-Public Use
  Company Number: US-CADILA HEALTHCARE LIMITED-US-ZYDUS-069675

PATIENT

DRUGS (9)
  1. METOPROLOL. [Suspect]
     Active Substance: METOPROLOL
     Indication: HYPERTENSION
     Dosage: UNK
     Route: 065
  2. ASPIRIN [ACETYLSALICYLIC ACID] [Concomitant]
     Active Substance: ASPIRIN
     Indication: EMBOLISM
     Dosage: UNK
  3. TELMISARTAN. [Concomitant]
     Active Substance: TELMISARTAN
     Indication: HYPERTENSION
     Dosage: UNK
  4. REMIFENTANIL [Concomitant]
     Active Substance: REMIFENTANIL
     Indication: ANAESTHESIA
     Dosage: 50 MICROGRAM
  5. ROCURONIUM [ROCURONIUM BROMIDE] [Concomitant]
     Active Substance: ROCURONIUM BROMIDE
     Indication: ANAESTHESIA
     Dosage: 100 MILLIGRAM
  6. LIDOCAINE. [Concomitant]
     Active Substance: LIDOCAINE
     Indication: ANAESTHESIA
     Dosage: 50 MILLIGRAM
  7. XARELTO [Concomitant]
     Active Substance: RIVAROXABAN
     Indication: EMBOLISM
  8. DESFLURANE. [Concomitant]
     Active Substance: DESFLURANE
     Indication: ANAESTHESIA
  9. PROPOFOL. [Concomitant]
     Active Substance: PROPOFOL
     Indication: ANAESTHESIA
     Dosage: 150 MILLIGRAM

REACTIONS (1)
  - Trigemino-cardiac reflex [Unknown]
